FAERS Safety Report 5405867-6 (Version None)
Quarter: 2007Q3

REPORT INFORMATION
  Report Type: 
  Country: None (occurrence: None)
  Receive Date: 20070806
  Receipt Date: 20070727
  Transmission Date: 20080115
  Serious: Yes (Other)
  Sender: FDA-Public Use
  Company Number: US-JNJFOC-20070800033

PATIENT
  Sex: Female
  Weight: 86.18 kg

DRUGS (7)
  1. DURAGESIC-100 [Suspect]
     Indication: PAIN
     Route: 062
  2. GLUCOPHAGE [Concomitant]
     Indication: DIABETES MELLITUS
     Route: 048
  3. AZULFIDINE [Concomitant]
     Indication: COLITIS
     Route: 048
  4. LIBRAX [Concomitant]
     Indication: COLITIS
     Route: 048
  5. ALTACE [Concomitant]
     Indication: BLOOD PRESSURE
     Route: 048
  6. ZANAFLEX [Concomitant]
     Indication: ANXIETY
     Route: 048
  7. ZOLOFT [Concomitant]
     Indication: ANXIETY
     Route: 048

REACTIONS (4)
  - ARTHRITIS [None]
  - BLOOD CHOLESTEROL INCREASED [None]
  - DRUG ADMINISTERED AT INAPPROPRIATE SITE [None]
  - WRONG TECHNIQUE IN DRUG USAGE PROCESS [None]
